FAERS Safety Report 4705383-0 (Version None)
Quarter: 2005Q3

REPORT INFORMATION
  Report Type: 
  Country: None (occurrence: None)
  Receive Date: 20050701
  Receipt Date: 20050610
  Transmission Date: 20060218
  Serious: Yes (Hospitalization)
  Sender: FDA-Public Use
  Company Number: US-GLAXOSMITHKLINE-A0562136A

PATIENT
  Age: 65 Year
  Sex: Female

DRUGS (8)
  1. FLONASE [Suspect]
     Indication: ACUTE SINUSITIS
     Dosage: 2PUFF TWICE PER DAY
     Route: 045
     Dates: start: 20050508
  2. ADVAIR [Concomitant]
     Indication: ASTHMA
     Dosage: 2PUFF TWICE PER DAY
     Route: 055
     Dates: start: 20050510
  3. ADVAIR DISKUS 100/50 [Concomitant]
  4. MIACALCIN [Concomitant]
  5. NORVASC [Concomitant]
  6. ALBUTEROL [Concomitant]
  7. CLINDAMYCIN [Concomitant]
  8. ZYRTEC [Concomitant]

REACTIONS (2)
  - ACUTE SINUSITIS [None]
  - OVERDOSE [None]
